FAERS Safety Report 14211196 (Version 8)
Quarter: 2018Q2

REPORT INFORMATION
  Report Type: Report from Study
  Country: US (occurrence: US)
  Receive Date: 20171121
  Receipt Date: 20180427
  Transmission Date: 20180711
  Serious: Yes (Life-Threatening, Hospitalization, Other)
  Sender: FDA-Public Use
  Company Number: US-GILEAD-2017-0305889

PATIENT
  Age: 35 Year
  Sex: Female
  Weight: 35.8 kg

DRUGS (15)
  1. PREDNISONE. [Concomitant]
     Active Substance: PREDNISONE
  2. KCL [Concomitant]
     Active Substance: POTASSIUM CHLORIDE
  3. AMBRISENTAN [Suspect]
     Active Substance: AMBRISENTAN
     Indication: PULMONARY ARTERIAL HYPERTENSION
     Dosage: 10 MG, QD
     Route: 048
     Dates: start: 2010
  4. TADALAFIL [Concomitant]
     Active Substance: TADALAFIL
  5. LASIX [Concomitant]
     Active Substance: FUROSEMIDE
  6. ADCIRCA [Concomitant]
     Active Substance: TADALAFIL
  7. REMODULIN [Suspect]
     Active Substance: TREPROSTINIL
     Dosage: 33.5 NG, UNK
     Route: 065
     Dates: start: 201708
  8. REMODULIN [Suspect]
     Active Substance: TREPROSTINIL
     Dosage: 42.3 NKM
     Route: 065
  9. REMODULIN [Suspect]
     Active Substance: TREPROSTINIL
     Indication: PULMONARY ARTERIAL HYPERTENSION
     Dosage: 29 NG, Q1MINUTE
     Route: 065
     Dates: start: 20170811
  10. REMODULIN [Suspect]
     Active Substance: TREPROSTINIL
     Dosage: 2.5 MG, UNK
     Route: 065
  11. HYDROXYCHLOROQUINE [Concomitant]
     Active Substance: HYDROXYCHLOROQUINE
  12. ADCIRCA [Concomitant]
     Active Substance: TADALAFIL
  13. REMODULIN [Suspect]
     Active Substance: TREPROSTINIL
     Dosage: 40 NKM
     Route: 065
  14. REMODULIN [Suspect]
     Active Substance: TREPROSTINIL
     Dosage: 42.3 NG, Q1SECOND
     Route: 065
  15. TREPROSTINIL DIOLAMIN [Concomitant]
     Active Substance: TREPROSTINIL DIOLAMINE

REACTIONS (7)
  - Diarrhoea [Recovering/Resolving]
  - Gastroenteritis [Recovered/Resolved]
  - Hypotension [Unknown]
  - Lung disorder [Unknown]
  - Nausea [Recovering/Resolving]
  - Pneumonia [Recovered/Resolved]
  - Catheter site pain [Unknown]

NARRATIVE: CASE EVENT DATE: 20171108
